FAERS Safety Report 26044029 (Version 1)
Quarter: 2025Q4

REPORT INFORMATION
  Report Type: Report from Study
  Country: IN (occurrence: IN)
  Receive Date: 20251114
  Receipt Date: 20251114
  Transmission Date: 20260119
  Serious: Yes (Death)
  Sender: ROCHE
  Company Number: IN-ROCHE-10000434863

PATIENT
  Age: 47 Year
  Sex: Male
  Weight: 91 kg

DRUGS (1)
  1. TECENTRIQ [Suspect]
     Active Substance: ATEZOLIZUMAB
     Indication: Hepatocellular carcinoma
     Route: 042
     Dates: start: 20251021

REACTIONS (1)
  - Neoplasm malignant [Fatal]

NARRATIVE: CASE EVENT DATE: 20251106
